FAERS Safety Report 9159093 (Version 1)
Quarter: 2013Q1

REPORT INFORMATION
  Report Type: Spontaneous
  Country: FR (occurrence: None)
  Receive Date: 20130213
  Receipt Date: 20130213
  Transmission Date: 20140127
  Serious: Yes (Hospitalization)
  Sender: FDA-Public Use
  Company Number: DSM-2013-00178

PATIENT
  Age: 78 Year
  Sex: Male

DRUGS (13)
  1. COOLMETEC [Suspect]
     Indication: HYPERTENSION
     Route: 048
  2. OMIX (TAMSULOSIN HYDROCHLORIDE) (PROLONGED-RELEASE GRANULES) (TAMSULOSIN HYDROCHLORIDE) [Suspect]
     Indication: PRODUCT USED FOR UNKNOWN INDICATION
     Route: 048
  3. ATARAX (HYDROXYZINE) (HYDROXYZINE) [Concomitant]
  4. XYZAL (LEVOCETRIZINE DIHYDROCHLORIDE) LEVOCETIRIZINE DIHYDROCHLORIDE) [Concomitant]
  5. LOXEN (NICARDIPINE HYDROCHLORIDE) (NICARDIPINE HYDROCHLORIDE) [Concomitant]
  6. DETENSIEL (BISOPROLOL) (BISOPROLOL) [Concomitant]
  7. LASILIX (FUROSEMIDE) (FUROSEMIDE) [Concomitant]
  8. KARDEGIC (ACETYLSALICYLATE LYSINE) (ACETYLSALICYLATE LYSINE) [Concomitant]
  9. ELISOR (PRAVASTATIN SODIUM) (PRAVASTATIN SODIUM) [Concomitant]
  10. DEBRIDAT (TRIMEBUTINE) (TRIMEBUTINE) [Concomitant]
  11. LEXOMIL (BROMAZEPAM0 (BROMAZEPAM) [Concomitant]
  12. ENDOTELON (VITIS VINIFERA) (VITIS VINIFERA) [Concomitant]
  13. AMAREL (GLIMEPIRIDE) (GLIMEPRIDE) [Concomitant]

REACTIONS (2)
  - Pemphigoid [None]
  - Toxicity to various agents [None]
